FAERS Safety Report 18967018 (Version 1)
Quarter: 2021Q1

REPORT INFORMATION
  Report Type: Spontaneous
  Country: US (occurrence: US)
  Receive Date: 20210304
  Receipt Date: 20210304
  Transmission Date: 20210420
  Serious: No
  Sender: FDA-Public Use
  Company Number: US-GLENMARK PHARMACEUTICALS-2020GMK050205

PATIENT

DRUGS (2)
  1. ALYACEN 7/7/7 [Suspect]
     Active Substance: ETHINYL ESTRADIOL\NORETHINDRONE
     Indication: DYSMENORRHOEA
  2. ALYACEN 7/7/7 [Suspect]
     Active Substance: ETHINYL ESTRADIOL\NORETHINDRONE
     Indication: ORAL CONTRACEPTION
     Dosage: 1 DOSAGE FORM, QD
     Route: 065
     Dates: start: 201911

REACTIONS (2)
  - Product use in unapproved indication [Unknown]
  - Adverse drug reaction [Not Recovered/Not Resolved]

NARRATIVE: CASE EVENT DATE: 201911
